FAERS Safety Report 14349723 (Version 1)
Quarter: 2018Q1

REPORT INFORMATION
  Report Type: Spontaneous
  Country: US (occurrence: US)
  Receive Date: 20180104
  Receipt Date: 20180104
  Transmission Date: 20180509
  Serious: Yes (Death, Hospitalization)
  Sender: FDA-Public Use
  Company Number: US-BAYER-2017-187048

PATIENT
  Age: 73 Year
  Sex: Female

DRUGS (4)
  1. BAYER ASPIRIN [Suspect]
     Active Substance: ASPIRIN
     Indication: PRODUCT USED FOR UNKNOWN INDICATION
     Dosage: 81 MG, UNK
     Route: 048
  2. XARELTO [Suspect]
     Active Substance: RIVAROXABAN
     Indication: SHOCK HAEMORRHAGIC
  3. XARELTO [Suspect]
     Active Substance: RIVAROXABAN
     Indication: CEREBROVASCULAR ACCIDENT PROPHYLAXIS
     Dosage: 20 MG, QD
     Route: 048
     Dates: start: 20140731, end: 20150926
  4. XARELTO [Suspect]
     Active Substance: RIVAROXABAN
     Indication: RETROPERITONEAL HAEMORRHAGE

REACTIONS (5)
  - Peritoneal haemorrhage [Unknown]
  - Shock haemorrhagic [Recovered/Resolved]
  - Perirenal haematoma [Fatal]
  - Brain contusion [Unknown]
  - Systemic inflammatory response syndrome [Unknown]

NARRATIVE: CASE EVENT DATE: 2015
